FAERS Safety Report 11214696 (Version 1)
Quarter: 2015Q2

REPORT INFORMATION
  Report Type: Spontaneous
  Country: US (occurrence: None)
  Receive Date: 20150622
  Receipt Date: 20150622
  Transmission Date: 20150821
  Serious: Yes (Other)
  Sender: FDA-Public Use
  Company Number: US-H14001-15-00955

PATIENT
  Age: 45 Year
  Sex: Male

DRUGS (1)
  1. RISPERIDONE (RISPERIDONE) UNKNOWN [Suspect]
     Active Substance: RISPERIDONE
     Indication: PSYCHOTIC DISORDER
     Dosage: 2 MG (1 MG, 2 IN 1 D)
     Route: 048

REACTIONS (5)
  - Electrocardiogram delta waves abnormal [None]
  - Electrocardiogram QT prolonged [None]
  - Palpitations [None]
  - Electrocardiogram PR shortened [None]
  - Wolff-Parkinson-White syndrome [None]
